FAERS Safety Report 24893097 (Version 1)
Quarter: 2025Q1

REPORT INFORMATION
  Report Type: Report from Study
  Country: AR (occurrence: AR)
  Receive Date: 20250128
  Receipt Date: 20250128
  Transmission Date: 20250409
  Serious: Yes (Other)
  Sender: ROCHE
  Company Number: AR-ROCHE-10000183357

PATIENT
  Age: 67 Year
  Sex: Female

DRUGS (2)
  1. PERJETA [Suspect]
     Active Substance: PERTUZUMAB
     Indication: Breast cancer
     Route: 040
     Dates: start: 20191019, end: 20250109
  2. HERCEPTIN [Suspect]
     Active Substance: TRASTUZUMAB
     Indication: Breast cancer
     Route: 040
     Dates: start: 20191019, end: 20250109

REACTIONS (2)
  - Breast mass [Unknown]
  - Treatment failure [Unknown]
